FAERS Safety Report 4436151-5 (Version None)
Quarter: 2004Q3

REPORT INFORMATION
  Report Type: 
  Country: None (occurrence: None)
  Receive Date: 20040830
  Receipt Date: 20040820
  Transmission Date: 20050211
  Serious: Yes (Other)
  Sender: FDA-Public Use
  Company Number: US-JNJFOC-20040404695

PATIENT
  Sex: Male
  Weight: 76.2 kg

DRUGS (4)
  1. REMICADE [Suspect]
     Route: 042
     Dates: start: 20040105
  2. REMICADE [Suspect]
     Route: 042
     Dates: start: 20040105
  3. REMICADE [Suspect]
     Indication: CROHN'S DISEASE
     Route: 042
     Dates: start: 20040105
  4. PENTASA [Concomitant]

REACTIONS (3)
  - ARTERIOVENOUS MALFORMATION [None]
  - CONVULSION [None]
  - LOSS OF CONSCIOUSNESS [None]
